FAERS Safety Report 11859756 (Version 4)
Quarter: 2017Q2

REPORT INFORMATION
  Report Type: Spontaneous
  Country: JP (occurrence: JP)
  Receive Date: 20151222
  Receipt Date: 20170609
  Transmission Date: 20170829
  Serious: Yes (Hospitalization, Other)
  Sender: FDA-Public Use
  Company Number: PHHY2015JP127477

PATIENT
  Age: 73 Year
  Sex: Male

DRUGS (1)
  1. VOTRIENT [Suspect]
     Active Substance: PAZOPANIB HYDROCHLORIDE
     Indication: METASTATIC RENAL CELL CARCINOMA
     Dosage: 800 MG, QD
     Route: 048
     Dates: start: 201409

REACTIONS (11)
  - Duodenal ulcer [Recovering/Resolving]
  - Anaemia [Unknown]
  - Abdominal wound dehiscence [Unknown]
  - Small intestinal perforation [Recovering/Resolving]
  - Gastrointestinal perforation [Unknown]
  - Abdominal abscess [Unknown]
  - Abdominal pain [Unknown]
  - Hypothyroidism [Unknown]
  - Palmar-plantar erythrodysaesthesia syndrome [Unknown]
  - Hypertension [Unknown]
  - Peritonitis [Unknown]

NARRATIVE: CASE EVENT DATE: 201503
